FAERS Safety Report 7199964-5 (Version None)
Quarter: 2010Q4

REPORT INFORMATION
  Report Type: 
  Country: None (occurrence: None)
  Receive Date: 20101228
  Receipt Date: 20101216
  Transmission Date: 20110411
  Serious: Yes (Hospitalization)
  Sender: FDA-Public Use
  Company Number: JP-PFIZER INC-2010113238

PATIENT
  Age: 35 Year
  Sex: Male
  Weight: 53 kg

DRUGS (4)
  1. CAMPTO [Suspect]
     Indication: COLORECTAL CANCER
     Dosage: 240 MG (155.8 MG/M2)
     Route: 041
     Dates: start: 20100210, end: 20100625
  2. CALCIUM LEVOFOLINATE [Concomitant]
     Indication: COLORECTAL CANCER
     Dosage: 300 MG (194.8 MG/M2)
     Route: 041
     Dates: start: 20100210, end: 20100625
  3. FLUOROURACIL [Concomitant]
     Indication: COLORECTAL CANCER
     Dosage: 600 MG (389.6 MG/M2)
     Route: 040
     Dates: start: 20100210, end: 20100626
  4. FLUOROURACIL [Concomitant]
     Dosage: 900 MG (584.4 MG/M2)
     Route: 041
     Dates: start: 20100210, end: 20100626

REACTIONS (2)
  - ABDOMINAL ABSCESS [None]
  - PYREXIA [None]
